FAERS Safety Report 5387059-2 (Version None)
Quarter: 2007Q3

REPORT INFORMATION
  Report Type: 
  Country: None (occurrence: None)
  Receive Date: 20070710
  Receipt Date: 20070628
  Transmission Date: 20080115
  Serious: Yes (Other)
  Sender: FDA-Public Use
  Company Number: 235329K07USA

PATIENT
  Age: 40 Year
  Sex: Male
  Weight: 98.8842 kg

DRUGS (7)
  1. REBIF [Suspect]
     Indication: MULTIPLE SCLEROSIS
     Dosage: 44 MCG, 3 IN 1 WEEKS, SUBCUTANEOUS
     Route: 058
     Dates: start: 20041001
  2. REBIF [Suspect]
     Indication: MULTIPLE SCLEROSIS
     Dosage: 44 MCG, 3 IN 1 WEEKS, SUBCUTANEOUS
     Route: 058
     Dates: start: 20061121
  3. TEGRETOL [Concomitant]
  4. AMITRIPTYLINE HCL [Concomitant]
  5. ACIPHEX [Concomitant]
  6. UROXATRAL [Concomitant]
  7. PAIN MEDICATIONS (ANALGESICS) [Concomitant]

REACTIONS (3)
  - DIABETES MELLITUS [None]
  - HYPERTENSION [None]
  - PROSTATE EXAMINATION ABNORMAL [None]
